FAERS Safety Report 9803152 (Version 2)
Quarter: 2014Q1

REPORT INFORMATION
  Report Type: Spontaneous
  Country: US (occurrence: None)
  Receive Date: 20140102
  Receipt Date: 20140131
  Transmission Date: 20141002
  Serious: Yes (Hospitalization)
  Sender: FDA-Public Use
  Company Number: AUR-APL-2013-10728

PATIENT
  Age: 70 Year
  Sex: 0

DRUGS (1)
  1. METFORMIN [Suspect]
     Indication: TYPE 2 DIABETES MELLITUS
     Dosage: 1000 MG (500 MG,2 IN 1 D)

REACTIONS (16)
  - Haemodialysis [None]
  - Metabolic acidosis [None]
  - Labelled drug-disease interaction medication error [None]
  - Chest pain [None]
  - Dyspnoea [None]
  - Blood pressure systolic increased [None]
  - Rales [None]
  - Heart sounds abnormal [None]
  - Blood glucose increased [None]
  - Kussmaul respiration [None]
  - Drug level above therapeutic [None]
  - Lactic acidosis [None]
  - Intentional overdose [None]
  - Hepatic failure [None]
  - Renal failure acute [None]
  - Dialysis [None]
